FAERS Safety Report 24647080 (Version 1)
Quarter: 2024Q4

REPORT INFORMATION
  Report Type: Spontaneous
  Country: BE (occurrence: BE)
  Receive Date: 20241121
  Receipt Date: 20241121
  Transmission Date: 20250115
  Serious: Yes (Hospitalization)
  Sender: ACCORD
  Company Number: BE-MLMSERVICE-20241104-PI245761-00270-1

PATIENT
  Age: 78 Year
  Sex: Male

DRUGS (2)
  1. TEMOZOLOMIDE [Suspect]
     Active Substance: TEMOZOLOMIDE
     Indication: Glioblastoma multiforme
     Dates: start: 2020
  2. METHYLPREDNISOLONE [Suspect]
     Active Substance: METHYLPREDNISOLONE
     Indication: Glioblastoma multiforme
     Dosage: 8 MG, ORALLY EVERY OTHER DAY (LONG-TERM LOW DOSE)
     Route: 048
     Dates: start: 2020

REACTIONS (4)
  - Infection reactivation [Recovering/Resolving]
  - Central nervous system viral infection [Recovering/Resolving]
  - Varicella zoster virus infection [Recovering/Resolving]
  - Gastrointestinal viral infection [Recovered/Resolved]

NARRATIVE: CASE EVENT DATE: 20211101
